FAERS Safety Report 6640412-9 (Version None)
Quarter: 2010Q1

REPORT INFORMATION
  Report Type: 
  Country: None (occurrence: None)
  Receive Date: 20100302
  Receipt Date: 20091103
  Transmission Date: 20100710
  Serious: No
  Sender: FDA-Public Use
  Company Number: 2009290546

PATIENT
  Age: 53 Year
  Sex: Female
  Weight: 112.9 kg

DRUGS (6)
  1. TOVIAZ [Suspect]
     Indication: HYPERTONIC BLADDER
     Dosage: 4 MG, 1X/DAY, ORAL
     Route: 048
     Dates: start: 20090822, end: 20090831
  2. REGLAN [Concomitant]
  3. PREVACID [Concomitant]
  4. LORTAB [Concomitant]
  5. PREMPRO [Concomitant]
  6. RELPAX [Concomitant]

REACTIONS (1)
  - DIARRHOEA [None]
